FAERS Safety Report 6005931-7 (Version None)
Quarter: 2008Q4

REPORT INFORMATION
  Report Type: 
  Country: None (occurrence: None)
  Receive Date: 20081217
  Receipt Date: 20081203
  Transmission Date: 20090506
  Serious: Yes (Life-Threatening, Other)
  Sender: FDA-Public Use
  Company Number: PHHY2008JP31426

PATIENT
  Sex: Female
  Weight: 39 kg

DRUGS (18)
  1. DIOVAN [Suspect]
     Indication: HYPERTENSION
     Dosage: 40 MG
     Route: 048
     Dates: start: 20070818, end: 20070914
  2. DIOVAN [Suspect]
     Dosage: 80 MG
     Route: 048
     Dates: start: 20070915, end: 20080328
  3. DIOVAN [Suspect]
     Dosage: 40 MG
     Route: 048
     Dates: start: 20080329
  4. CALBLOCK [Suspect]
     Indication: HYPERTENSION
     Dosage: UNK
     Dates: start: 20070929, end: 20080118
  5. ATELEC [Suspect]
     Indication: HYPERTENSION
     Dosage: UNK
     Dates: start: 20080119, end: 20080314
  6. LASIX [Suspect]
     Indication: HYPERTENSION
     Dosage: 40 MG
     Route: 048
  7. LASIX [Suspect]
     Dosage: 20 MG
     Route: 048
     Dates: start: 20080119
  8. ALDACTONE [Suspect]
     Indication: HYPERTENSION
     Dosage: 25 MG
     Route: 048
     Dates: start: 20080119, end: 20080419
  9. ALDACTONE [Suspect]
     Dosage: 12 MG
     Route: 048
  10. ARTIST [Suspect]
  11. NORVASC [Concomitant]
     Indication: HYPERTENSION
     Dosage: 1.25 MG, UNK
     Dates: start: 20070526, end: 20070928
  12. WARFARIN SODIUM [Concomitant]
     Dosage: UNK
     Route: 048
     Dates: start: 20061220
  13. NIKORANMART [Concomitant]
     Dosage: UNK
     Route: 048
     Dates: start: 20040905
  14. URICAL [Concomitant]
     Dosage: 200 MG
     Dates: start: 20080119
  15. URICAL [Concomitant]
     Dosage: 100 MG
  16. LANIRAPID [Concomitant]
     Dosage: UNK
     Route: 048
     Dates: start: 20080510, end: 20080718
  17. LUDIOMIL [Concomitant]
     Dosage: UNK
     Route: 048
     Dates: start: 20080329
  18. LOSARTAN POTASSIUM AND HYDROCHLOROTHIAZIDE [Concomitant]
     Indication: HYPERTENSION
     Dosage: 1 DF, UNK
     Route: 048
     Dates: start: 20070124, end: 20070817

REACTIONS (11)
  - ATRIAL FIBRILLATION [None]
  - BLOOD CREATININE INCREASED [None]
  - BLOOD POTASSIUM INCREASED [None]
  - BLOOD UREA INCREASED [None]
  - BRAIN NATRIURETIC PEPTIDE INCREASED [None]
  - CARDIAC FAILURE [None]
  - HYPERTENSION [None]
  - OEDEMA PERIPHERAL [None]
  - RENAL ATROPHY [None]
  - RENAL FAILURE [None]
  - TRICUSPID VALVE INCOMPETENCE [None]
